FAERS Safety Report 6993711-5 (Version None)
Quarter: 2010Q3

REPORT INFORMATION
  Report Type: 
  Country: None (occurrence: None)
  Receive Date: 20100917
  Receipt Date: 20100719
  Transmission Date: 20110219
  Serious: Yes (Other)
  Sender: FDA-Public Use
  Company Number: US-ASTRAZENECA-2010SE33623

PATIENT
  Sex: Female

DRUGS (6)
  1. SEROQUEL XR [Suspect]
     Indication: BIPOLAR DISORDER
     Route: 048
     Dates: start: 20100301, end: 20100301
  2. SEROQUEL XR [Suspect]
     Indication: MANIA
     Route: 048
     Dates: start: 20100301, end: 20100301
  3. AMBIEN [Concomitant]
  4. XANAX [Concomitant]
  5. DEPAKOTE [Concomitant]
  6. CYMBALTA [Concomitant]

REACTIONS (2)
  - CONVULSION [None]
  - DRUG DOSE OMISSION [None]
